FAERS Safety Report 10196929 (Version 1)
Quarter: 2014Q2

REPORT INFORMATION
  Report Type: Spontaneous
  Country: AU (occurrence: AU)
  Receive Date: 20140527
  Receipt Date: 20140527
  Transmission Date: 20141212
  Serious: Yes (Other)
  Sender: FDA-Public Use
  Company Number: AU-SA-2014SA064389

PATIENT
  Sex: 0

DRUGS (1)
  1. AUBAGIO [Suspect]
     Indication: PRODUCT USED FOR UNKNOWN INDICATION
     Route: 065

REACTIONS (6)
  - Suicide attempt [Unknown]
  - Depression [Unknown]
  - Asocial behaviour [Unknown]
  - Aggression [Unknown]
  - Confusional state [Unknown]
  - Abnormal behaviour [Unknown]
